FAERS Safety Report 10321722 (Version 2)
Quarter: 2015Q1

REPORT INFORMATION
  Report Type: Other
  Country: US (occurrence: US)
  Receive Date: 20140719
  Receipt Date: 20150302
  Transmission Date: 20150720
  Serious: Yes (Hospitalization, Other)
  Sender: FDA-Public Use
  Company Number: US-GSKPPD-2014GSK030813

PATIENT
  Age: 45 Year
  Sex: Female

DRUGS (10)
  1. RAMIPRIL. [Concomitant]
     Active Substance: RAMIPRIL
     Route: 048
  2. SIMVASTATIN. [Concomitant]
     Active Substance: SIMVASTATIN
     Route: 048
  3. ISOSORBIDE [Concomitant]
     Active Substance: ISOSORBIDE
     Route: 048
  4. METOPROLOL [Concomitant]
     Active Substance: METOPROLOL
     Route: 048
  5. AVANDIA [Suspect]
     Active Substance: ROSIGLITAZONE MALEATE
     Indication: DIABETES MELLITUS
     Dosage: AVANDIA WAS NOT LISTED AMONG THE PATIENTS RECORDS REVIEWED
     Route: 048
  6. PLAVIX [Concomitant]
     Active Substance: CLOPIDOGREL BISULFATE
     Route: 048
  7. AVALIDE [Concomitant]
     Active Substance: HYDROCHLOROTHIAZIDE\IRBESARTAN
     Dosage: 300 OVER 12.5
     Route: 048
  8. ASPIRIN. [Concomitant]
     Active Substance: ASPIRIN
     Route: 048
  9. TEKTURNA [Concomitant]
     Active Substance: ALISKIREN HEMIFUMARATE
     Route: 048
  10. AMLODIPINE [Concomitant]
     Active Substance: AMLODIPINE BESYLATE
     Route: 048

REACTIONS (2)
  - Coronary artery disease [Recovered/Resolved]
  - Cardiac failure congestive [Unknown]

NARRATIVE: CASE EVENT DATE: 20091117
